FAERS Safety Report 21968805 (Version 1)
Quarter: 2023Q1

REPORT INFORMATION
  Report Type: Spontaneous
  Country: CA (occurrence: CA)
  Receive Date: 20230208
  Receipt Date: 20230208
  Transmission Date: 20230417
  Serious: Yes (Hospitalization, Other)
  Sender: FDA-Public Use
  Company Number: CA-MLMSERVICE-20230127-4065383-1

PATIENT
  Age: 31 Year
  Sex: Female

DRUGS (2)
  1. ACETAMINOPHEN [Suspect]
     Active Substance: ACETAMINOPHEN
     Indication: Product used for unknown indication
     Dosage: UNK
     Route: 065
  2. ACETAMINOPHEN [Suspect]
     Active Substance: ACETAMINOPHEN
     Indication: Drug provocation test
     Dosage: 60 MG, SINGLE
     Route: 048

REACTIONS (4)
  - Pruritus [Unknown]
  - Drug hypersensitivity [Recovered/Resolved]
  - Nasal congestion [Unknown]
  - Periorbital swelling [Unknown]
